FAERS Safety Report 24223710 (Version 1)
Quarter: 2024Q3

REPORT INFORMATION
  Report Type: Spontaneous
  Country: US (occurrence: US)
  Receive Date: 20240819
  Receipt Date: 20240819
  Transmission Date: 20241016
  Serious: Yes (Other)
  Sender: SANOFI AVENTIS
  Company Number: US-SA-SAC20240817000352

PATIENT
  Sex: Male
  Weight: 57.153 kg

DRUGS (1)
  1. DUPIXENT [Suspect]
     Active Substance: DUPILUMAB
     Indication: Illness
     Dosage: 300MG, QW
     Route: 058

REACTIONS (4)
  - Autism spectrum disorder [Unknown]
  - Giardiasis [Unknown]
  - Gastrostomy tube site complication [Unknown]
  - Weight increased [Unknown]
